FAERS Safety Report 25080240 (Version 3)
Quarter: 2025Q1

REPORT INFORMATION
  Report Type: Report from Study
  Country: US (occurrence: US)
  Receive Date: 20250314
  Receipt Date: 20250319
  Transmission Date: 20250409
  Serious: Yes (Death)
  Sender: ABBVIE
  Company Number: US-ABBVIE-6176983

PATIENT
  Age: 79 Year
  Sex: Male

DRUGS (4)
  1. VENCLEXTA [Suspect]
     Active Substance: VENETOCLAX
     Indication: Prostate cancer
     Dosage: FORM STRENGTH: 100 MG?TAKE DIRECTED ON PACKAGE, DO NOT CRUSH CHEW OR SPIT, SWALLOW WHOLE,?LAST AD...
     Route: 048
     Dates: start: 202501, end: 20250215
  2. VENCLEXTA [Suspect]
     Active Substance: VENETOCLAX
     Indication: Prostate cancer
     Dosage: TAKE DIRECTED ON PACKAGE, DO NOT CRUSH CHEW OR SPIT, SWALLOW WHOLE
     Route: 048
  3. VENCLEXTA [Suspect]
     Active Substance: VENETOCLAX
     Indication: Prostate cancer
     Dosage: TAKE DIRECTED ON PACKAGE, DO NOT CRUSH CHEW OR SPIT, SWALLOW WHOLE
     Route: 048
  4. VENCLEXTA [Suspect]
     Active Substance: VENETOCLAX
     Indication: Prostate cancer
     Dosage: TAKE DIRECTED ON PACKAGE, DO NOT CRUSH CHEW OR SPIT, SWALLOW WHOLE
     Route: 048

REACTIONS (1)
  - Death [Fatal]

NARRATIVE: CASE EVENT DATE: 20250306
